FAERS Safety Report 24652234 (Version 4)
Quarter: 2025Q4

REPORT INFORMATION
  Report Type: Report from Study
  Country: CN (occurrence: CN)
  Receive Date: 20241122
  Receipt Date: 20251001
  Transmission Date: 20260117
  Serious: Yes (Hospitalization)
  Sender: ALEXION PHARMACEUTICALS
  Company Number: CN-ASTRAZENECA-202411GLO016792CN

PATIENT
  Age: 65 Year
  Sex: Female
  Weight: 65 kg

DRUGS (5)
  1. OSIMERTINIB [Suspect]
     Active Substance: OSIMERTINIB
     Indication: Non-small cell lung cancer
     Dosage: 160 MILLIGRAM, Q2W
     Dates: start: 20241101, end: 20241111
  2. BECOTATUG [Suspect]
     Active Substance: BECOTATUG
     Indication: Non-small cell lung cancer
     Dosage: 6 MILLIGRAM/KILOGRAM, Q2W
     Dates: start: 20241101, end: 20241101
  3. MINOCYCLINE HYDROCHLORIDE [Concomitant]
     Active Substance: MINOCYCLINE HYDROCHLORIDE
     Indication: Prophylaxis
     Dosage: 200 MILLIGRAM, BID
     Dates: start: 20241101
  4. RESLIZUMAB [Concomitant]
     Active Substance: RESLIZUMAB
     Indication: Prophylaxis
     Dosage: 120 MILLIGRAM
  5. AMINOPHYLLINE\CHLORPHENIRAMINE MALEATE\METHOXYPHENAMINE HYDROCHLORIDE\ [Concomitant]
     Active Substance: AMINOPHYLLINE\CHLORPHENIRAMINE MALEATE\METHOXYPHENAMINE HYDROCHLORIDE\NOSCAPINE
     Indication: Cough
     Dosage: 2 CAPSULES

REACTIONS (1)
  - Gastroenteritis [Recovering/Resolving]

NARRATIVE: CASE EVENT DATE: 20241112
